FAERS Safety Report 13190666 (Version 1)
Quarter: 2017Q1

REPORT INFORMATION
  Report Type: Spontaneous
  Country: KG (occurrence: KG)
  Receive Date: 20170206
  Receipt Date: 20170206
  Transmission Date: 20170428
  Serious: Yes (Death, Hospitalization, Other)
  Sender: FDA-Public Use
  Company Number: KG-ACTELION-A-US2016-141741

PATIENT
  Age: 34 Year
  Sex: Female
  Weight: 85 kg

DRUGS (12)
  1. VENTAVIS [Suspect]
     Active Substance: ILOPROST
     Dosage: 5 MCG, QID
     Route: 055
  2. VENTAVIS [Suspect]
     Active Substance: ILOPROST
     Dosage: 5 MCG, 5X DAY
     Route: 055
  3. TRIMETAZIDINE [Concomitant]
     Active Substance: TRIMETAZIDINE
  4. RIOCIGUAT [Suspect]
     Active Substance: RIOCIGUAT
     Indication: PRODUCT USED FOR UNKNOWN INDICATION
     Dosage: 2 MG, TID
     Route: 065
  5. ROSUVASTATIN CALCIUM. [Concomitant]
     Active Substance: ROSUVASTATIN CALCIUM
  6. GYNO-TARDYFERON [Concomitant]
  7. VENTAVIS [Suspect]
     Active Substance: ILOPROST
     Indication: PRODUCT USED FOR UNKNOWN INDICATION
     Dosage: 2.5 MCG, 5X DAY
     Route: 055
     Dates: start: 20160625, end: 20160824
  8. CARBAMAZEPINE. [Concomitant]
     Active Substance: CARBAMAZEPINE
  9. VENTAVIS [Suspect]
     Active Substance: ILOPROST
     Dosage: 2.5 MCG, 5X DAY
     Route: 055
  10. XARELTO [Suspect]
     Active Substance: RIVAROXABAN
     Indication: PRODUCT USED FOR UNKNOWN INDICATION
     Dosage: 10 MG, QD
     Route: 065
  11. DIGOXIN. [Concomitant]
     Active Substance: DIGOXIN
  12. TORASEMIDE [Concomitant]
     Active Substance: TORSEMIDE

REACTIONS (11)
  - Loss of consciousness [Unknown]
  - Pericardial effusion [Unknown]
  - Feeling abnormal [Unknown]
  - Vomiting [Unknown]
  - Chest pain [Unknown]
  - Nausea [Unknown]
  - Death [Fatal]
  - Feeling cold [Unknown]
  - Palpitations [Unknown]
  - Skin discolouration [Unknown]
  - Product use issue [Unknown]

NARRATIVE: CASE EVENT DATE: 20161006
